FAERS Safety Report 8675976 (Version 2)
Quarter: 2013Q1

REPORT INFORMATION
  Report Type: Spontaneous
  Country: BR (occurrence: BR)
  Receive Date: 20120720
  Receipt Date: 20130114
  Transmission Date: 20140127
  Serious: Yes (Death, Hospitalization, Other)
  Sender: FDA-Public Use
  Company Number: PHHY2012BR062256

PATIENT
  Age: 87 Year
  Sex: Female

DRUGS (3)
  1. DIOVAN AMLO FIX [Suspect]
     Indication: HYPERTENSION
     Dosage: 1 DF (320 MG VALS AND 10 MG AMLO), DAILY
  2. AAS [Concomitant]
     Indication: ANTICOAGULANT THERAPY
  3. SOMALGIN [Concomitant]
     Indication: ANTICOAGULANT THERAPY
     Dosage: 1 DF, DAILY
     Route: 048

REACTIONS (2)
  - Cerebrovascular accident [Fatal]
  - Cerebral ischaemia [Fatal]
